FAERS Safety Report 8374118 (Version 2)
Quarter: 2013Q1

REPORT INFORMATION
  Report Type: Report from Study
  Country: US (occurrence: US)
  Receive Date: 20120129
  Receipt Date: 20130128
  Transmission Date: 20140127
  Serious: No
  Sender: FDA-Public Use
  Company Number: US-ABBOTT-11P-163-0865942-00

PATIENT
  Age: 50 Year
  Sex: Female

DRUGS (14)
  1. HUMIRA 40 MG/0.8 ML PEN [Suspect]
     Indication: RHEUMATOID ARTHRITIS
     Route: 058
     Dates: start: 20110928
  2. PLAQUENIL [Concomitant]
     Indication: SYSTEMIC LUPUS ERYTHEMATOSUS
     Dosage: 200 MG QD
  3. OMEPRAZOLE [Concomitant]
     Indication: GASTROOESOPHAGEAL REFLUX DISEASE
     Dosage: 20 MG QD
  4. ESTRADIOL [Concomitant]
     Indication: PRODUCT USED FOR UNKNOWN INDICATION
     Dosage: 0.5 MG QD
  5. FOLIC ACID [Concomitant]
     Dosage: 1 MG QD
  6. METHYLPREDNISOLONE [Concomitant]
     Indication: PRODUCT USED FOR UNKNOWN INDICATION
     Dosage: 20 MG QD
  7. CLONAZEPAM [Concomitant]
     Indication: ANXIETY
     Dosage: 0.5 MG TID PRN
  8. POTASSIUM [Concomitant]
     Indication: PRODUCT USED FOR UNKNOWN INDICATION
     Dosage: 10 MEQ QD
  9. BUSPIRONE [Concomitant]
     Indication: ANXIETY
     Dosage: QD
  10. LASIX [Concomitant]
     Indication: FLUID RETENTION
     Dosage: 40 MG BID
  11. LIOTHYRONINE [Concomitant]
     Indication: HYPOTHYROIDISM
     Dosage: 25 MEQ QD
  12. LEVOTHYROXINE [Concomitant]
     Indication: THYROID DISORDER
     Dosage: 100 MCG QD
  13. VITAMINS [Concomitant]
     Dosage: QD
  14. METHOTREXATE [Concomitant]
     Indication: PRODUCT USED FOR UNKNOWN INDICATION
     Dosage: 0.7MG QW
     Route: 050

REACTIONS (5)
  - Nausea [Recovering/Resolving]
  - Neck pain [Unknown]
  - Fatigue [Recovering/Resolving]
  - Pain [Unknown]
  - Swelling [Recovering/Resolving]
